FAERS Safety Report 15487389 (Version 2)
Quarter: 2018Q4

REPORT INFORMATION
  Report Type: Spontaneous
  Country: US (occurrence: US)
  Receive Date: 20181011
  Receipt Date: 20181113
  Transmission Date: 20190205
  Serious: Yes (Other)
  Sender: FDA-Public Use
  Company Number: US-ROCHE-2195805

PATIENT
  Sex: Female
  Weight: 98.52 kg

DRUGS (1)
  1. OCREVUS [Suspect]
     Active Substance: OCRELIZUMAB
     Indication: RELAPSING-REMITTING MULTIPLE SCLEROSIS
     Dosage: ONGOING: NO
     Route: 065
     Dates: start: 201711

REACTIONS (7)
  - Laryngitis fungal [Unknown]
  - Optic neuropathy [Unknown]
  - Sinusitis [Unknown]
  - Musculoskeletal stiffness [Unknown]
  - Muscle spasticity [Not Recovered/Not Resolved]
  - Ophthalmic herpes zoster [Unknown]
  - Infection [Unknown]
